FAERS Safety Report 8428506-9 (Version None)
Quarter: 2012Q2

REPORT INFORMATION
  Report Type: 
  Country: None (occurrence: None)
  Receive Date: 20120612
  Receipt Date: 20120607
  Transmission Date: 20120825
  Serious: No
  Sender: FDA-Public Use
  Company Number: US-PFIZER INC-2012137779

PATIENT
  Age: 40 Year
  Sex: Female

DRUGS (4)
  1. CYMBALTA [Concomitant]
     Dosage: UNK
  2. CELEBREX [Suspect]
     Dosage: 200 MG, 1X/DAY
     Route: 048
  3. CELEBREX [Suspect]
     Indication: FIBROMYALGIA
     Dosage: 200 MG, 1X/DAY
     Route: 048
  4. LYRICA [Concomitant]
     Dosage: UNK

REACTIONS (1)
  - RASH [None]
